FAERS Safety Report 5167357-8 (Version None)
Quarter: 2006Q4

REPORT INFORMATION
  Report Type: 
  Country: None (occurrence: None)
  Receive Date: 20061207
  Receipt Date: 20061127
  Transmission Date: 20070319
  Serious: Yes (Hospitalization)
  Sender: FDA-Public Use
  Company Number: DE-ABBOTT-06P-062-0351727-00

PATIENT
  Age: 67 Year
  Sex: Female

DRUGS (3)
  1. HUMIRA [Suspect]
     Indication: RHEUMATOID ARTHRITIS
     Route: 058
     Dates: start: 20060501, end: 20060901
  2. HUMIRA [Suspect]
     Route: 058
     Dates: start: 20050401, end: 20060201
  3. HUMIRA [Suspect]
     Route: 058
     Dates: start: 20061001

REACTIONS (1)
  - TENOSYNOVITIS [None]
